FAERS Safety Report 8159345-4 (Version None)
Quarter: 2012Q1

REPORT INFORMATION
  Report Type: 
  Country: None (occurrence: None)
  Receive Date: 20120223
  Receipt Date: 20120216
  Transmission Date: 20120608
  Serious: Yes (Death, Other)
  Sender: FDA-Public Use
  Company Number: US-PFIZER INC-2010000808

PATIENT
  Age: 48 Year
  Sex: Male

DRUGS (4)
  1. VENLAFAXINE HCL [Suspect]
     Route: 048
  2. SITAGLIPTIN [Suspect]
     Route: 048
  3. GABAPENTIN [Suspect]
     Route: 048
  4. IBUPROFEN [Suspect]
     Route: 048

REACTIONS (1)
  - COMPLETED SUICIDE [None]
